FAERS Safety Report 9879979 (Version 1)
Quarter: 2014Q1

REPORT INFORMATION
  Report Type: Spontaneous
  Country: IT (occurrence: IT)
  Receive Date: 20140207
  Receipt Date: 20140207
  Transmission Date: 20141002
  Serious: Yes (Hospitalization, Other)
  Sender: FDA-Public Use
  Company Number: IT-MERCK-1402ITA000906

PATIENT
  Age: 72 Year
  Sex: Male

DRUGS (7)
  1. XELEVIA [Suspect]
     Indication: TYPE 2 DIABETES MELLITUS
     Dosage: 50 MG, QD
     Route: 048
     Dates: start: 20111212, end: 20140121
  2. NOVO-NORM [Concomitant]
     Dosage: 4 MG, UNK
     Route: 048
  3. LANTUS [Concomitant]
     Dosage: 8 DF, (8 DOSE UNITS)
  4. ACARBOSIO TECNIGEN (ACARBOSE) [Concomitant]
     Dosage: 200 MG, UNK
     Route: 048
  5. CARDIRENE [Concomitant]
     Dosage: 160 DF, (160 DOSE)
     Route: 048
  6. LOFTYL [Concomitant]
     Dosage: 600 DF, (600 DOSE UNIT)
  7. OLPREZIDE [Concomitant]

REACTIONS (2)
  - Cholecystitis infective [Recovered/Resolved with Sequelae]
  - Cholecystectomy [Unknown]
